FAERS Safety Report 17085383 (Version 3)
Quarter: 2025Q3

REPORT INFORMATION
  Report Type: Spontaneous
  Country: EU (occurrence: EU)
  Receive Date: 20191128
  Receipt Date: 20250710
  Transmission Date: 20251021
  Serious: Yes (Death, Hospitalization, Other)
  Sender: AUROBINDO
  Company Number: EU-BLUEFISH PHARMACEUTICALS AB-2019BF002908

PATIENT
  Sex: Male

DRUGS (3)
  1. NAPROXEN [Suspect]
     Active Substance: NAPROXEN
     Indication: Arthralgia
     Route: 065
  2. NAPROXEN [Suspect]
     Active Substance: NAPROXEN
     Indication: Erythema
     Route: 065
  3. NAPROXEN [Suspect]
     Active Substance: NAPROXEN
     Indication: Joint swelling
     Route: 065

REACTIONS (4)
  - Dyspnoea [Fatal]
  - Hypersensitivity [Fatal]
  - Cardiac arrest [Fatal]
  - Contraindicated product administered [Fatal]
